FAERS Safety Report 10710310 (Version 1)
Quarter: 2015Q1

REPORT INFORMATION
  Report Type: Spontaneous
  Country: TW (occurrence: None)
  Receive Date: 20150112
  Receipt Date: 20150112
  Transmission Date: 20150721
  Serious: Yes (Hospitalization)
  Sender: FDA-Public Use
  Company Number: 2014AJA00042

PATIENT
  Age: 47 Year
  Sex: Female

DRUGS (5)
  1. RISPERIDONE. [Suspect]
     Active Substance: RISPERIDONE
     Indication: SCHIZOPHRENIA, PARANOID TYPE
  2. MIDAZOLAM [Suspect]
     Active Substance: MIDAZOLAM\MIDAZOLAM HYDROCHLORIDE
  3. FLURAZEPAM [Suspect]
     Active Substance: FLURAZEPAM\FLURAZEPAM HYDROCHLORIDE
  4. TRIHEXYPHENIDYL [Suspect]
     Active Substance: TRIHEXYPHENIDYL
  5. CLONAZEPAM. [Suspect]
     Active Substance: CLONAZEPAM

REACTIONS (21)
  - Suicidal ideation [None]
  - Blood urea increased [None]
  - Alanine aminotransferase increased [None]
  - Suicide attempt [None]
  - Intentional overdose [None]
  - Myoclonus [None]
  - Social avoidant behaviour [None]
  - Persecutory delusion [None]
  - Depressed mood [None]
  - White blood cell count increased [None]
  - Rhabdomyolysis [None]
  - Insomnia [None]
  - Anhedonia [None]
  - Aspartate aminotransferase increased [None]
  - Negative thoughts [None]
  - Sinus tachycardia [None]
  - Drug interaction [None]
  - Weight increased [None]
  - Therapy cessation [None]
  - Hallucination, auditory [None]
  - Decreased appetite [None]

NARRATIVE: CASE EVENT DATE: 20140909
